FAERS Safety Report 17947939 (Version 2)
Quarter: 2020Q3

REPORT INFORMATION
  Report Type: Spontaneous
  Country: US (occurrence: US)
  Receive Date: 20200625
  Receipt Date: 20200710
  Transmission Date: 20201103
  Serious: Yes (Hospitalization, Other)
  Sender: FDA-Public Use
  Company Number: US-BAUSCH-BL-2020-017830

PATIENT
  Age: 73 Year
  Sex: Male

DRUGS (4)
  1. DECADRON [Suspect]
     Active Substance: DEXAMETHASONE
     Indication: PLASMA CELL MYELOMA
     Dosage: VD PROTOCOL; MAINTENANCE CHEMOTHERAPY
     Route: 048
     Dates: start: 201408, end: 201512
  2. VELCADE [Suspect]
     Active Substance: BORTEZOMIB
     Dosage: RESUMED CHEMOTHERAPY 10 MONTHS AFTER RE?IMPLANTATION
     Route: 058
     Dates: start: 2017
  3. VELCADE [Suspect]
     Active Substance: BORTEZOMIB
     Indication: PLASMA CELL MYELOMA
     Dosage: VD PROTOCOL; MAINTENANCE CHEMOTHERAPY
     Route: 058
     Dates: start: 201408, end: 20151223
  4. DECADRON [Suspect]
     Active Substance: DEXAMETHASONE
     Dosage: RESUMED CHEMOTHERAPY 10 MONTHS AFTER RE?IMPLANTATION
     Route: 048
     Dates: start: 2017

REACTIONS (3)
  - Osteomyelitis bacterial [Recovered/Resolved]
  - Enterobacter sepsis [Recovered/Resolved]
  - Arthritis infective [Recovered/Resolved]

NARRATIVE: CASE EVENT DATE: 201512
